FAERS Safety Report 8535873-4 (Version None)
Quarter: 2012Q3

REPORT INFORMATION
  Report Type: 
  Country: None (occurrence: None)
  Receive Date: 20120725
  Receipt Date: 20120718
  Transmission Date: 20120928
  Serious: Yes (Hospitalization, Other)
  Sender: FDA-Public Use
  Company Number: PHHY2012GB061596

PATIENT
  Age: 81 Year
  Sex: Male
  Weight: 80 kg

DRUGS (6)
  1. FINASTERIDE [Concomitant]
  2. ACETAMINOPHEN [Concomitant]
  3. DICLOFENAC [Suspect]
     Indication: PAIN
  4. CODEINE SULFATE [Concomitant]
  5. ATENOLOL [Interacting]
  6. ASPIRIN [Concomitant]

REACTIONS (3)
  - TROPONIN I INCREASED [None]
  - RENAL FAILURE ACUTE [None]
  - BRADYCARDIA [None]
